FAERS Safety Report 9148723 (Version 1)
Quarter: 2013Q1

REPORT INFORMATION
  Report Type: Spontaneous
  Country: US (occurrence: None)
  Receive Date: 20130228
  Receipt Date: 20130228
  Transmission Date: 20140127
  Serious: Yes (Other)
  Sender: FDA-Public Use
  Company Number: None

PATIENT
  Sex: 0

DRUGS (2)
  1. MONTELUKAST SODIUM [Suspect]
     Indication: MULTIPLE ALLERGIES
     Route: 048
     Dates: start: 20121101, end: 20121201
  2. ALBUTEROL SULFATE [Concomitant]

REACTIONS (5)
  - Product substitution issue [None]
  - Drug ineffective [None]
  - Dyspnoea [None]
  - Cough [None]
  - Product quality issue [None]
